FAERS Safety Report 19021137 (Version 4)
Quarter: 2021Q2

REPORT INFORMATION
  Report Type: Spontaneous
  Country: JP (occurrence: JP)
  Receive Date: 20210317
  Receipt Date: 20210520
  Transmission Date: 20210717
  Serious: Yes (Other)
  Sender: FDA-Public Use
  Company Number: JP-JNJFOC-20210325445

PATIENT
  Age: 38 Year
  Sex: Male
  Weight: 52 kg

DRUGS (13)
  1. BIOFERMIN R [Concomitant]
     Active Substance: DIETARY SUPPLEMENT\PROBIOTICS
     Dates: start: 20200924, end: 20201210
  2. FLAGYL [Concomitant]
     Active Substance: METRONIDAZOLE\METRONIDAZOLE HYDROCHLORIDE
     Route: 048
     Dates: start: 20200924, end: 20201210
  3. STELARA [Suspect]
     Active Substance: USTEKINUMAB
     Indication: COLITIS ULCERATIVE
     Dosage: DOSE UNKNOWN
     Route: 042
     Dates: start: 20201112, end: 20201112
  4. PREDONINE [Suspect]
     Active Substance: PREDNISOLONE
     Indication: HAEMOTHORAX
     Route: 048
     Dates: start: 20210128, end: 20210210
  5. IMURAN [Concomitant]
     Active Substance: AZATHIOPRINE
     Route: 048
     Dates: start: 20210401
  6. TACROLIMUS. [Suspect]
     Active Substance: TACROLIMUS
     Indication: COLITIS ULCERATIVE
     Route: 065
     Dates: start: 20200917, end: 20201111
  7. MIYA?BM [Concomitant]
     Active Substance: CLOSTRIDIUM BUTYRICUM SPORES STRAIN M-55
     Route: 048
  8. PENTASA [Concomitant]
     Active Substance: MESALAMINE
     Route: 048
  9. STELARA [Suspect]
     Active Substance: USTEKINUMAB
     Route: 058
     Dates: end: 20210107
  10. PREDONINE [Suspect]
     Active Substance: PREDNISOLONE
     Indication: PLEURISY
     Route: 048
     Dates: start: 20210211, end: 20210224
  11. PREDONINE [Suspect]
     Active Substance: PREDNISOLONE
     Route: 048
     Dates: start: 20210225, end: 20210310
  12. PREDONINE [Suspect]
     Active Substance: PREDNISOLONE
     Route: 048
     Dates: start: 20210311, end: 20210401
  13. IMURAN [Concomitant]
     Active Substance: AZATHIOPRINE
     Route: 048
     Dates: end: 20210331

REACTIONS (3)
  - Haemothorax [Recovering/Resolving]
  - Eosinophil count increased [Unknown]
  - Pleurisy [Recovering/Resolving]

NARRATIVE: CASE EVENT DATE: 20210107
